FAERS Safety Report 8665651 (Version 3)
Quarter: 2012Q4

REPORT INFORMATION
  Report Type: 
  Country: US (occurrence: US)
  Receive Date: 20120716
  Receipt Date: 20121221
  Transmission Date: 20130627
  Serious: Yes (Other)
  Sender: FDA-Public Use
  Company Number: US-BAYER-2012-069856

PATIENT
  Age: 27 Year
  Sex: Female
  Weight: 63.49 kg

DRUGS (6)
  1. YAZ [Suspect]
     Dosage: UNK
     Dates: start: 2003, end: 201003
  2. YAZ [Suspect]
     Dosage: UNK
  3. ONE A DAY [Concomitant]
     Dosage: 1 pill, QD
     Dates: start: 201001, end: 20100412
  4. ATIVAN [Concomitant]
     Dosage: UNK
  5. PROZAC [Concomitant]
     Dosage: UNK
  6. VITAMINS [Concomitant]

REACTIONS (19)
  - Cerebrovascular accident [Recovered/Resolved]
  - High risk pregnancy [None]
  - Cerebral infarction [None]
  - Suicidal ideation [None]
  - Stress [None]
  - Injury [Recovered/Resolved]
  - General physical health deterioration [Recovered/Resolved]
  - Anxiety [None]
  - Pain [Recovered/Resolved]
  - Anhedonia [None]
  - Amnesia [Recovered/Resolved]
  - Mental status changes [Recovered/Resolved]
  - Photophobia [Recovered/Resolved]
  - Hyperacusis [Recovered/Resolved]
  - Fatigue [Recovered/Resolved]
  - Hormone level abnormal [None]
  - Weight increased [None]
  - Pain [None]
  - Emotional distress [None]
